FAERS Safety Report 9479560 (Version 2)
Quarter: 2013Q3

REPORT INFORMATION
  Report Type: Spontaneous
  Country: US (occurrence: US)
  Receive Date: 20130827
  Receipt Date: 20130828
  Transmission Date: 20140515
  Serious: Yes (Other)
  Sender: FDA-Public Use
  Company Number: US-ABBOTT-13P-163-1137962-00

PATIENT
  Age: 44 Year
  Sex: Female
  Weight: 65.83 kg

DRUGS (2)
  1. SYNTHROID [Suspect]
     Indication: AUTOIMMUNE THYROIDITIS
     Dates: start: 201306, end: 20130818
  2. BIRTH CONTROL PILLS (NON-ABBOTT) [Concomitant]
     Indication: PRODUCT USED FOR UNKNOWN INDICATION

REACTIONS (4)
  - Presyncope [Recovered/Resolved]
  - Pruritus [Not Recovered/Not Resolved]
  - Urticaria [Recovering/Resolving]
  - Eczema [Not Recovered/Not Resolved]
